FAERS Safety Report 12705710 (Version 1)
Quarter: 2016Q3

REPORT INFORMATION
  Report Type: Spontaneous
  Country: US (occurrence: None)
  Receive Date: 20160831
  Receipt Date: 20160831
  Transmission Date: 20161109
  Serious: Yes (Hospitalization)
  Sender: FDA-Public Use
  Company Number: None

PATIENT
  Age: 17 Year
  Sex: Female
  Weight: 98.88 kg

DRUGS (5)
  1. ENALAPRIL [Concomitant]
     Active Substance: ENALAPRIL
  2. ADVIL [Concomitant]
     Active Substance: IBUPROFEN
  3. TYLENOL [Concomitant]
     Active Substance: ACETAMINOPHEN
  4. AZITHROMYCIN ANHYDROUS. [Suspect]
     Active Substance: AZITHROMYCIN ANHYDROUS
     Indication: BACTERIAL INFECTION
     Dosage: 200MG/5ML 11ML FIRST DAY 5.5 FROM DAY 2 TO DAY 5 ONCE A DAY BY MOUTH
     Route: 048
     Dates: start: 20160722, end: 20160725
  5. MOTRIN [Concomitant]
     Active Substance: IBUPROFEN

REACTIONS (10)
  - Hallucination [None]
  - Crying [None]
  - Inappropriate affect [None]
  - Lethargy [None]
  - Rash [None]
  - Product quality issue [None]
  - Pyrexia [None]
  - Viral infection [None]
  - Amnesia [None]
  - Vision blurred [None]

NARRATIVE: CASE EVENT DATE: 20160726
